FAERS Safety Report 12920844 (Version 3)
Quarter: 2017Q1

REPORT INFORMATION
  Report Type: Spontaneous
  Country: JP (occurrence: JP)
  Receive Date: 20161107
  Receipt Date: 20170105
  Transmission Date: 20170428
  Serious: Yes (Other)
  Sender: FDA-Public Use
  Company Number: JP-PFIZER INC-2016512512

PATIENT
  Age: 61 Year
  Sex: Female

DRUGS (2)
  1. TS-1 [Suspect]
     Active Substance: GIMERACIL\OTERACIL\TEGAFUR
     Indication: PANCREATIC CARCINOMA
     Dosage: 80 MG, (80 MG/BODY; DAYS 1-14, DISCONTINUED DAYS 15-21 (TOTAL OF 50 COURSES))
     Dates: start: 20091008, end: 20110526
  2. GEMCITABINE HYDROCHLORIDE. [Suspect]
     Active Substance: GEMCITABINE HYDROCHLORIDE
     Indication: PANCREATIC CARCINOMA
     Dosage: 1000 MG, CYCLIC (1,000 MG/BODY; DAYS 1 AND 8)
     Dates: start: 20091008, end: 20110526

REACTIONS (2)
  - Thrombophlebitis [Unknown]
  - Arthralgia [Unknown]

NARRATIVE: CASE EVENT DATE: 20110524
